FAERS Safety Report 7338956-X (Version None)
Quarter: 2011Q1

REPORT INFORMATION
  Report Type: 
  Country: None (occurrence: None)
  Receive Date: 20110308
  Receipt Date: 20110223
  Transmission Date: 20110831
  Serious: Yes (Life-Threatening, Hospitalization, Other)
  Sender: FDA-Public Use
  Company Number: FR-ELI_LILLY_AND_COMPANY-FR201005004896

PATIENT
  Sex: Male

DRUGS (3)
  1. TERCIAN [Concomitant]
     Dosage: 50 MG, DAILY (1/D)
     Route: 048
     Dates: start: 20100301
  2. LYSANXIA [Concomitant]
     Dosage: 5 GTT, 3/D
     Route: 048
     Dates: start: 20100301
  3. CYMBALTA [Suspect]
     Indication: DEPRESSION
     Dosage: 30 MG, DAILY (1/D)
     Route: 048
     Dates: start: 20100402, end: 20100516

REACTIONS (6)
  - CELL DEATH [None]
  - HAEMORRHOIDS [None]
  - HOMICIDE [None]
  - CORONARY ARTERY DISEASE [None]
  - SUICIDE ATTEMPT [None]
  - COMA [None]
